FAERS Safety Report 7865107-5 (Version None)
Quarter: 2011Q4

REPORT INFORMATION
  Report Type: 
  Country: None (occurrence: None)
  Receive Date: 20111028
  Receipt Date: 20101011
  Transmission Date: 20120403
  Serious: No
  Sender: FDA-Public Use
  Company Number: US-GLAXOSMITHKLINE-A0886822A

PATIENT
  Age: 75 Year
  Sex: Female

DRUGS (2)
  1. UNSPECIFIED MEDICATION [Suspect]
  2. ADVAIR DISKUS 100/50 [Suspect]
     Route: 055
     Dates: start: 20090528

REACTIONS (1)
  - ORAL INFECTION [None]
